FAERS Safety Report 14019571 (Version 1)
Quarter: 2017Q3

REPORT INFORMATION
  Report Type: Spontaneous
  Country: US (occurrence: US)
  Receive Date: 20170928
  Receipt Date: 20170928
  Transmission Date: 20171128
  Serious: Yes (Other)
  Sender: FDA-Public Use
  Company Number: US-009507513-1709USA012692

PATIENT
  Age: 54 Year
  Sex: Female

DRUGS (7)
  1. VITAMINS (UNSPECIFIED) [Concomitant]
     Active Substance: VITAMINS
  2. DIFICID [Suspect]
     Active Substance: FIDAXOMICIN
     Dosage: 200 MG TABLET, TWICE DAILY FOR ONE MONTH
     Route: 048
     Dates: start: 20170922
  3. MERCAPTOPURINE. [Concomitant]
     Active Substance: MERCAPTOPURINE
     Dosage: UNK
  4. IRON (UNSPECIFIED) [Concomitant]
     Active Substance: IRON
     Route: 048
  5. DIFICID [Suspect]
     Active Substance: FIDAXOMICIN
     Indication: CLOSTRIDIUM DIFFICILE INFECTION
     Dosage: 200 MG TABLET, TWICE DAILY FOR 2 WEEKS
     Route: 048
     Dates: start: 20170616, end: 20170630
  6. REMICADE [Concomitant]
     Active Substance: INFLIXIMAB
  7. FOLIC ACID. [Concomitant]
     Active Substance: FOLIC ACID

REACTIONS (3)
  - Clostridium difficile infection [Not Recovered/Not Resolved]
  - Rectal haemorrhage [Not Recovered/Not Resolved]
  - Incorrect drug administration duration [Unknown]

NARRATIVE: CASE EVENT DATE: 2017
